FAERS Safety Report 14773808 (Version 3)
Quarter: 2023Q1

REPORT INFORMATION
  Report Type: Spontaneous
  Country: US (occurrence: None)
  Receive Date: 20180418
  Receipt Date: 20230322
  Transmission Date: 20230417
  Serious: Yes (Other)
  Sender: FDA-Public Use
  Company Number: 2018SE46651

PATIENT
  Age: 53 Year
  Sex: Male
  Weight: 72.6 kg

DRUGS (86)
  1. PRILOSEC [Suspect]
     Active Substance: OMEPRAZOLE MAGNESIUM
     Indication: Gastrooesophageal reflux disease
     Dosage: GENERIC 20-40MG ONCE DAILY
     Dates: start: 2012, end: 201711
  2. PRILOSEC [Suspect]
     Active Substance: OMEPRAZOLE MAGNESIUM
     Indication: Gastrooesophageal reflux disease
     Route: 048
     Dates: start: 2014, end: 2017
  3. PRILOSEC [Suspect]
     Active Substance: OMEPRAZOLE MAGNESIUM
     Indication: Gastrooesophageal reflux disease
     Route: 048
     Dates: start: 20170117
  4. PRILOSEC [Suspect]
     Active Substance: OMEPRAZOLE MAGNESIUM
     Indication: Gastrooesophageal reflux disease
     Dosage: GENERIC
     Dates: start: 20170426
  5. PRILOSEC [Suspect]
     Active Substance: OMEPRAZOLE MAGNESIUM
     Indication: Gastrooesophageal reflux disease
     Dosage: GENERIC
     Dates: start: 20171115
  6. PRILOSEC [Suspect]
     Active Substance: OMEPRAZOLE MAGNESIUM
     Indication: Gastrooesophageal reflux disease
     Dosage: GENERIC BEFORE BREAKFAST
     Dates: start: 20170128
  7. PRILOSEC [Suspect]
     Active Substance: OMEPRAZOLE MAGNESIUM
     Indication: Gastrooesophageal reflux disease
     Route: 048
     Dates: start: 2010, end: 2017
  8. PRILOSEC OTC [Suspect]
     Active Substance: OMEPRAZOLE MAGNESIUM
     Route: 048
     Dates: start: 2006, end: 2017
  9. PANTOPRAZOLE [Suspect]
     Active Substance: PANTOPRAZOLE
     Indication: Gastrooesophageal reflux disease
     Dosage: 40 MG ONCE DAILY
     Route: 065
     Dates: start: 2012, end: 201708
  10. PANTOPRAZOLE [Suspect]
     Active Substance: PANTOPRAZOLE
     Indication: Gastrooesophageal reflux disease
     Route: 048
     Dates: start: 20150203
  11. PANTOPRAZOLE [Suspect]
     Active Substance: PANTOPRAZOLE
     Indication: Gastrooesophageal reflux disease
     Route: 065
     Dates: start: 20160926
  12. LEUCINE/VITAMIN B12 NOS/NICOTINAMIDE/CALCIUM PANTOTHENATE/VITAMIN E NO [Concomitant]
     Indication: Prophylaxis
     Dates: start: 2008
  13. DOCUSATE SODIUM [Concomitant]
     Active Substance: DOCUSATE SODIUM
     Indication: Prophylaxis
     Dates: start: 2015
  14. DOCUSATE SODIUM [Concomitant]
     Active Substance: DOCUSATE SODIUM
     Indication: Prophylaxis
     Dates: start: 20151208
  15. AFLURIA NOS [Concomitant]
     Active Substance: INFLUENZA VIRUS VACCINE TRIVALENT TYPE A+B AFLURIA
     Indication: Influenza
     Dates: start: 2016
  16. ALLOPURINOL [Concomitant]
     Active Substance: ALLOPURINOL
     Indication: Renal disorder
     Dates: start: 2014
  17. ALLOPURINOL [Concomitant]
     Active Substance: ALLOPURINOL
     Indication: Renal disorder
     Dates: start: 20150203
  18. ALLOPURINOL [Concomitant]
     Active Substance: ALLOPURINOL
     Indication: Renal disorder
     Dates: start: 20170716
  19. AMLODIPINE [Concomitant]
     Active Substance: AMLODIPINE BESYLATE
     Indication: Hypertension
     Dates: start: 20150203
  20. ASPIRIN [Concomitant]
     Active Substance: ASPIRIN
     Indication: Cardiac disorder
     Dates: start: 2015
  21. ASPIRIN [Concomitant]
     Active Substance: ASPIRIN
     Indication: Cardiac disorder
     Dates: start: 20140131
  22. ASPIRIN [Concomitant]
     Active Substance: ASPIRIN
     Indication: Cardiac disorder
     Dates: start: 20170801
  23. ATENOLOL [Concomitant]
     Active Substance: ATENOLOL
     Indication: Hypertension
     Dates: start: 2013
  24. ATENOLOL [Concomitant]
     Active Substance: ATENOLOL
     Indication: Hypertension
     Dates: start: 20140131
  25. ATENOLOL [Concomitant]
     Active Substance: ATENOLOL
     Indication: Hypertension
     Dates: start: 20170801
  26. ATORVASTATIN [Concomitant]
     Active Substance: ATORVASTATIN
     Indication: Blood cholesterol increased
     Dates: start: 2015
  27. ATORVASTATIN [Concomitant]
     Active Substance: ATORVASTATIN
     Indication: Blood cholesterol increased
     Dosage: 40 MG DAILY AT A BEDTIME
     Dates: start: 20170716
  28. AZITHROMYCIN [Concomitant]
     Active Substance: AZITHROMYCIN
     Indication: Infection
     Dates: start: 2016
  29. AZITHROMYCIN [Concomitant]
     Active Substance: AZITHROMYCIN
     Indication: Infection
     Dates: start: 20160926
  30. AZITHROMYCIN [Concomitant]
     Active Substance: AZITHROMYCIN
     Indication: Infection
     Dates: start: 20160929
  31. BUSPIRONE [Concomitant]
     Active Substance: BUSPIRONE HYDROCHLORIDE
     Indication: Anxiety
     Dates: start: 2017
  32. BUSPIRONE [Concomitant]
     Active Substance: BUSPIRONE HYDROCHLORIDE
     Indication: Anxiety
     Dates: start: 20170716
  33. CHLORTHALIDONE [Concomitant]
     Active Substance: CHLORTHALIDONE
     Indication: Hypertension
     Dates: start: 2014, end: 2017
  34. CIPRO [Concomitant]
     Active Substance: CIPROFLOXACIN HYDROCHLORIDE
     Indication: Infection
     Dates: start: 2014, end: 2015
  35. CIPRO [Concomitant]
     Active Substance: CIPROFLOXACIN HYDROCHLORIDE
     Indication: Infection
     Dates: start: 20150203
  36. CLONIDINE [Concomitant]
     Active Substance: CLONIDINE
     Indication: Hypertension
     Dates: start: 20130603
  37. CLONIDINE [Concomitant]
     Active Substance: CLONIDINE
     Indication: Hypertension
     Dates: start: 20130924, end: 20131024
  38. CLONIDINE [Concomitant]
     Active Substance: CLONIDINE
     Indication: Hypertension
     Dates: start: 20140131
  39. CLOPIDOGREL [Concomitant]
     Active Substance: CLOPIDOGREL BISULFATE
     Indication: Cerebrovascular accident
     Dates: start: 2013, end: 2017
  40. CYCLOBENZAPRINE [Concomitant]
     Active Substance: CYCLOBENZAPRINE
     Indication: Pain
     Dates: start: 2013, end: 2015
  41. ENDOCET [Concomitant]
     Active Substance: ACETAMINOPHEN\OXYCODONE HYDROCHLORIDE
     Indication: Pain
     Dates: start: 2015
  42. FERROUS SULFATE [Concomitant]
     Active Substance: FERROUS SULFATE
     Indication: Iron deficiency
     Dates: start: 2015, end: 2016
  43. FERROUS SULFATE [Concomitant]
     Active Substance: FERROUS SULFATE
     Indication: Iron deficiency
  44. FLUTICASONE [Concomitant]
     Active Substance: FLUTICASONE
     Indication: Pain
     Dosage: 50 MCG DAILY.
     Dates: start: 20150816, end: 2016
  45. FUROSEMIDE [Concomitant]
     Active Substance: FUROSEMIDE
     Indication: Fluid retention
     Dates: start: 2016
  46. GABAPENTIN [Concomitant]
     Active Substance: GABAPENTIN
     Indication: Neuralgia
     Dates: start: 2016, end: 2017
  47. IBUPROFEN [Concomitant]
     Active Substance: IBUPROFEN
     Indication: Pain
     Dates: start: 2007
  48. IBUPROFEN [Concomitant]
     Active Substance: IBUPROFEN
     Indication: Pain
     Dates: start: 20130924
  49. IBUPROFEN [Concomitant]
     Active Substance: IBUPROFEN
     Indication: Pain
     Dosage: 600 MG
     Dates: start: 20150203
  50. INDOMETHACIN [Concomitant]
     Active Substance: INDOMETHACIN
     Indication: Pain
     Dates: start: 2017
  51. CETIRIZINE [Concomitant]
     Active Substance: CETIRIZINE HYDROCHLORIDE
     Indication: Hypersensitivity
     Dates: start: 20171117
  52. TIZANIDINE [Concomitant]
     Active Substance: TIZANIDINE
     Indication: Muscle spasms
     Dosage: 4 MG AT A BEDTIME
     Dates: start: 2017
  53. LISINOPRIL [Concomitant]
     Active Substance: LISINOPRIL
     Indication: Hypertension
     Dates: start: 2009, end: 2015
  54. LOSARTAN [Concomitant]
     Active Substance: LOSARTAN
     Indication: Hypertension
     Dates: start: 2017
  55. MUCINEX D [Concomitant]
     Active Substance: GUAIFENESIN\PSEUDOEPHEDRINE HYDROCHLORIDE
     Indication: Pulmonary congestion
     Dates: start: 2017
  56. METRONIDAZOLE [Concomitant]
     Active Substance: METRONIDAZOLE
     Indication: Infection
     Dates: start: 2014, end: 2015
  57. NITROSTAT [Concomitant]
     Active Substance: NITROGLYCERIN
     Indication: Chest pain
     Dates: start: 2015, end: 2017
  58. NITROSTAT [Concomitant]
     Active Substance: NITROGLYCERIN
     Indication: Chest pain
     Dates: start: 2016
  59. PAROXETINE [Concomitant]
     Active Substance: PAROXETINE
     Indication: Depression
     Dates: start: 20150816
  60. SULFASALAZINE [Concomitant]
     Active Substance: SULFASALAZINE
     Indication: Arthritis
     Dates: start: 2015, end: 2017
  61. TRAZODONE [Concomitant]
     Active Substance: TRAZODONE HYDROCHLORIDE
     Indication: Depression
     Dates: start: 2017
  62. TAMSULOSIN [Concomitant]
     Active Substance: TAMSULOSIN
     Indication: Prostatomegaly
     Dates: start: 2015
  63. FINASTERIDE [Concomitant]
     Active Substance: FINASTERIDE
     Indication: Prostatomegaly
     Dates: start: 2017
  64. PROAIR HFA [Concomitant]
     Active Substance: ALBUTEROL SULFATE
     Dosage: 90 MCG 2 PUFFS EVERY 4 HOURS AS NEEDED.
  65. LABETALOL [Concomitant]
     Active Substance: LABETALOL\LABETALOL HYDROCHLORIDE
     Dosage: 20 MG
  66. ACETAMINOPHEN [Concomitant]
     Active Substance: ACETAMINOPHEN
     Dosage: 650 MG
  67. DEXAMETHASONE [Concomitant]
     Active Substance: DEXAMETHASONE
     Dosage: 10 MG
  68. METOCLOPRAMIDE [Concomitant]
     Active Substance: METOCLOPRAMIDE
     Dosage: 10 MG
  69. COLCHICINE [Concomitant]
     Active Substance: COLCHICINE
     Dates: start: 20130924, end: 20131024
  70. VITAMIN D2 [Concomitant]
     Active Substance: ERGOCALCIFEROL
     Dosage: 50000 UNIT ONCE EACH WEEK
  71. MORPHINE [Concomitant]
     Active Substance: MORPHINE
     Dosage: 4 MG INJECTION
     Dates: start: 20140904
  72. ONDANSETRON [Concomitant]
     Active Substance: ONDANSETRON
     Dates: start: 20150322
  73. HALOPERIDOL [Concomitant]
     Active Substance: HALOPERIDOL
     Dosage: 5 MG
     Dates: start: 20160926
  74. FENTANYL [Concomitant]
     Active Substance: FENTANYL
     Dosage: 25 MCG
     Dates: start: 20160926
  75. BUDESONIDE [Concomitant]
     Active Substance: BUDESONIDE
     Dates: start: 20160926
  76. AMPICILLIN [Concomitant]
     Active Substance: AMPICILLIN
     Dates: start: 20160926
  77. ACYCLOVIR [Concomitant]
     Active Substance: ACYCLOVIR
     Dosage: 775 MG IN D5W 150 ML
     Dates: start: 20160926
  78. ACYCLOVIR [Concomitant]
     Active Substance: ACYCLOVIR
     Dates: start: 20160929
  79. FOLIC ACID [Concomitant]
     Active Substance: FOLIC ACID
     Dosage: 1 MG
     Dates: start: 20160926
  80. FOLIC ACID [Concomitant]
     Active Substance: FOLIC ACID
     Dates: start: 20160929
  81. HEPARIN [Concomitant]
     Active Substance: HEPARIN SODIUM
     Dosage: 5000 UNITS EVERY 8 HOURS
     Dates: start: 20160926
  82. LORAZEPAM [Concomitant]
     Active Substance: LORAZEPAM
     Dosage: AS NEEDED
     Dates: start: 20160926
  83. SILVER SULFADIAZINE [Concomitant]
     Active Substance: SILVER SULFADIAZINE
     Dates: start: 20170803
  84. LIDOCAINE [Concomitant]
     Active Substance: LIDOCAINE
     Dosage: REMOVE PATCH AFTER 12 HOURS.
     Dates: start: 20171116
  85. LORATADINE [Concomitant]
     Active Substance: LORATADINE
     Dates: start: 20171116
  86. PENICILLIN V POTASSIUM [Concomitant]
     Active Substance: PENICILLIN V POTASSIUM
     Dates: start: 20140615, end: 20140622

REACTIONS (3)
  - Chronic kidney disease [Not Recovered/Not Resolved]
  - Renal failure [Unknown]
  - Acute kidney injury [Not Recovered/Not Resolved]

NARRATIVE: CASE EVENT DATE: 20140101
